FAERS Safety Report 9813551 (Version 1)
Quarter: 2014Q1

REPORT INFORMATION
  Report Type: Spontaneous
  Country: US (occurrence: US)
  Receive Date: 20140113
  Receipt Date: 20140113
  Transmission Date: 20141002
  Serious: Yes (Death)
  Sender: FDA-Public Use
  Company Number: US-PFIZER INC-2014005975

PATIENT
  Age: 54 Year
  Sex: Male

DRUGS (8)
  1. HYDROXYZINE PAMOATE [Suspect]
     Dosage: UNK
  2. FAMOTIDINE [Suspect]
     Dosage: UNK
  3. CLINDAMYCIN HCL [Suspect]
     Dosage: UNK
  4. LOSARTAN [Suspect]
     Dosage: UNK
  5. LORAZEPAM [Suspect]
     Dosage: UNK
  6. METFORMIN [Suspect]
     Dosage: UNK
  7. POTASSIUM CHLORIDE [Suspect]
     Dosage: UNK
  8. ACETYLSALICYLIC ACID [Suspect]
     Dosage: UNK

REACTIONS (1)
  - Completed suicide [Fatal]
